FAERS Safety Report 6554060-2 (Version None)
Quarter: 2010Q1

REPORT INFORMATION
  Report Type: 
  Country: None (occurrence: None)
  Receive Date: 20100125
  Receipt Date: 20100125
  Transmission Date: 20100710
  Serious: Yes (Death)
  Sender: FDA-Public Use
  Company Number: None

PATIENT
  Sex: Female
  Weight: 56.4 kg

DRUGS (2)
  1. TEGRETOL [Suspect]
     Indication: CONVULSION
     Dosage: UNSURE ASK DR
  2. CARBAMAZEPINE [Suspect]

REACTIONS (3)
  - ALOPECIA [None]
  - ORGAN FAILURE [None]
  - STEVENS-JOHNSON SYNDROME [None]
